FAERS Safety Report 21782783 (Version 2)
Quarter: 2025Q3

REPORT INFORMATION
  Report Type: Report from Study
  Country: US (occurrence: US)
  Receive Date: 20221227
  Receipt Date: 20250828
  Transmission Date: 20251020
  Serious: No
  Sender: ABBVIE
  Company Number: US-ABBVIE-22K-163-4536636-00

PATIENT
  Age: 60 Year
  Sex: Female

DRUGS (2)
  1. RINVOQ [Suspect]
     Active Substance: UPADACITINIB
     Indication: Ankylosing spondylitis
     Dosage: FORM STRENGTH: 15 MG
     Route: 048
     Dates: start: 202202
  2. RINVOQ [Suspect]
     Active Substance: UPADACITINIB
     Indication: Ankylosing spondylitis
     Dosage: FORM STRENGTH: 15 MG
     Route: 048
     Dates: start: 202504

REACTIONS (5)
  - Alopecia [Unknown]
  - Feeling abnormal [Recovered/Resolved]
  - Skin warm [Recovered/Resolved]
  - Nervousness [Unknown]
  - Tinnitus [Unknown]

NARRATIVE: CASE EVENT DATE: 20220101
